FAERS Safety Report 17812267 (Version 1)
Quarter: 2020Q2

REPORT INFORMATION
  Report Type: Spontaneous
  Country: GB (occurrence: GB)
  Receive Date: 20200521
  Receipt Date: 20200521
  Transmission Date: 20200714
  Serious: Yes (Other)
  Sender: FDA-Public Use
  Company Number: GB-MYLANLABS-2020M1049194

PATIENT
  Age: 66 Year
  Sex: Female
  Weight: 73.4 kg

DRUGS (4)
  1. CYANOCOBALAMIN. [Concomitant]
     Active Substance: CYANOCOBALAMIN
     Indication: VITAMIN B12 DEFICIENCY
     Dosage: 150 MICROGRAM, QD
     Dates: start: 20200203
  2. UNIROID HC [Concomitant]
     Dosage: PERIANAL REGION, APPLY THINLY
     Route: 061
     Dates: start: 20200305
  3. SIMVASTATIN. [Suspect]
     Active Substance: SIMVASTATIN
     Indication: VITAMIN B12 DEFICIENCY
     Dosage: 40 MILLIGRAM
     Route: 048
  4. PALBOCICLIB [Interacting]
     Active Substance: PALBOCICLIB
     Indication: PRODUCT USED FOR UNKNOWN INDICATION

REACTIONS (2)
  - Rhabdomyolysis [Recovered/Resolved]
  - Drug interaction [Unknown]

NARRATIVE: CASE EVENT DATE: 20200103
